FAERS Safety Report 18485278 (Version 1)
Quarter: 2020Q4

REPORT INFORMATION
  Report Type: Spontaneous
  Country: US (occurrence: US)
  Receive Date: 20201109
  Receipt Date: 20201109
  Transmission Date: 20210114
  Serious: No
  Sender: FDA-Public Use
  Company Number: None

PATIENT
  Sex: Male

DRUGS (1)
  1. RISPERIDONE. [Suspect]
     Active Substance: RISPERIDONE

REACTIONS (7)
  - Documented hypersensitivity to administered product [None]
  - Gynaecomastia [None]
  - Tremor [None]
  - Weight increased [None]
  - Weight loss poor [None]
  - Fatigue [None]
  - Rhinorrhoea [None]

NARRATIVE: CASE EVENT DATE: 20200821
